FAERS Safety Report 24592577 (Version 2)
Quarter: 2024Q4

REPORT INFORMATION
  Report Type: Spontaneous
  Country: CA (occurrence: CA)
  Receive Date: 20241108
  Receipt Date: 20241112
  Transmission Date: 20250115
  Serious: Yes (Other)
  Sender: CELLTRION
  Company Number: CA-PFIZER INC-202400292234

PATIENT

DRUGS (3)
  1. INFLECTRA [Suspect]
     Active Substance: INFLIXIMAB-DYYB
     Indication: Crohn^s disease
     Dosage: 770 MG (10 MG/KG), Q 6 WEEK DOSE
     Route: 042
     Dates: start: 20240905
  2. IMURAN [Concomitant]
     Active Substance: AZATHIOPRINE
     Dosage: 1 DF, UNKNOWN DOSAGE AND FREQUENCY
     Route: 065
     Dates: start: 201701
  3. PREDNISONE [Concomitant]
     Active Substance: PREDNISONE
     Dosage: 1 DF, UNKNOWN DOSAGE AND FREQUENCY
     Route: 065

REACTIONS (2)
  - Pneumonia [Recovering/Resolving]
  - Choking [Unknown]

NARRATIVE: CASE EVENT DATE: 20240101
